FAERS Safety Report 14386262 (Version 2)
Quarter: 2020Q1

REPORT INFORMATION
  Report Type: Spontaneous
  Country: US (occurrence: US)
  Receive Date: 20180115
  Receipt Date: 20200128
  Transmission Date: 20200409
  Serious: Yes (Other)
  Sender: FDA-Public Use
  Company Number: US-SA-2017SA087564

PATIENT
  Age: 61 Year
  Sex: Female
  Weight: 63.5 kg

DRUGS (12)
  1. DOCETAXEL. [Suspect]
     Active Substance: DOCETAXEL
     Indication: BREAST CANCER FEMALE
     Dosage: 120 MG,Q3W
     Route: 042
     Dates: start: 20130617, end: 20130617
  2. HERCEPTIN [Concomitant]
     Active Substance: TRASTUZUMAB
     Indication: BREAST CANCER
     Dosage: UNK UNK,Q3W
     Route: 042
     Dates: start: 20130617, end: 20130617
  3. ZOLOFT [Concomitant]
     Active Substance: SERTRALINE HYDROCHLORIDE
     Dosage: UNK UNK,UNK
     Route: 065
     Dates: start: 2003
  4. CARBOPLATIN. [Concomitant]
     Active Substance: CARBOPLATIN
     Indication: BREAST CANCER
     Dosage: UNK UNK,Q3W
     Route: 042
     Dates: start: 20130617, end: 20130617
  5. RITALIN [Concomitant]
     Active Substance: METHYLPHENIDATE HYDROCHLORIDE
     Dosage: UNK UNK,UNK
     Route: 065
     Dates: start: 2001
  6. HERCEPTIN [Concomitant]
     Active Substance: TRASTUZUMAB
     Dosage: UNK UNK,Q3W
     Route: 042
     Dates: start: 20130826, end: 20130826
  7. CARBOPLATIN. [Concomitant]
     Active Substance: CARBOPLATIN
     Dosage: UNK UNK,Q3W
     Route: 042
     Dates: start: 20130826, end: 20130826
  8. METHADONE [Concomitant]
     Active Substance: METHADONE HYDROCHLORIDE
     Dosage: UNK UNK,UNK
     Route: 065
     Dates: start: 2001
  9. SYNTHROID [Concomitant]
     Active Substance: LEVOTHYROXINE SODIUM
     Dosage: UNK UNK,UNK
     Route: 065
     Dates: start: 2003
  10. DOCETAXEL. [Suspect]
     Active Substance: DOCETAXEL
     Dosage: 120 MG,Q3W
     Route: 042
     Dates: start: 20130826, end: 20130826
  11. HYDROCHLOROTHIAZIDE. [Concomitant]
     Active Substance: HYDROCHLOROTHIAZIDE
     Dosage: UNK UNK,UNK
     Route: 065
     Dates: start: 2003
  12. PRAMIPEXOLE. [Concomitant]
     Active Substance: PRAMIPEXOLE
     Dosage: UNK UNK,UNK
     Route: 065
     Dates: start: 2003

REACTIONS (4)
  - Alopecia [Recovering/Resolving]
  - Hair texture abnormal [Unknown]
  - Hair colour changes [Unknown]
  - Psychological trauma [Unknown]

NARRATIVE: CASE EVENT DATE: 20140226
